FAERS Safety Report 10208530 (Version 3)
Quarter: 2014Q2

REPORT INFORMATION
  Report Type: Report from Study
  Country: DE (occurrence: DE)
  Receive Date: 20140530
  Receipt Date: 20140618
  Transmission Date: 20141212
  Serious: Yes (Other)
  Sender: FDA-Public Use
  Company Number: DE-GLAXOSMITHKLINE-Z0020917A

PATIENT
  Age: 62 Year
  Sex: Female
  Weight: 70 kg

DRUGS (3)
  1. DABRAFENIB [Suspect]
     Indication: NON-SMALL CELL LUNG CANCER
     Dosage: 150MG TWICE PER DAY
     Route: 048
     Dates: start: 20130729
  2. CIPROBAY [Concomitant]
     Indication: URINARY TRACT INFECTION
     Dosage: 500MGML TWICE PER DAY
     Route: 048
     Dates: start: 20130801, end: 20130807
  3. PARACETAMOL [Concomitant]
     Indication: PYREXIA
     Dosage: 500MG PER DAY
     Route: 048
     Dates: start: 20130802, end: 20130802

REACTIONS (1)
  - Alanine aminotransferase increased [Recovered/Resolved]
